FAERS Safety Report 8336434-2 (Version None)
Quarter: 2012Q2

REPORT INFORMATION
  Report Type: 
  Country: None (occurrence: None)
  Receive Date: 20120504
  Receipt Date: 20120420
  Transmission Date: 20120825
  Serious: Yes (Other)
  Sender: FDA-Public Use
  Company Number: DE-CELGENEUS-062-C5013-12042226

PATIENT
  Age: 75 Year
  Sex: Male
  Weight: 90.6 kg

DRUGS (6)
  1. MELPHALAN HYDROCHLORIDE [Suspect]
     Indication: MULTIPLE MYELOMA
     Dosage: 16 MILLIGRAM
     Route: 048
     Dates: start: 20080212
  2. PREDNISONE TAB [Suspect]
     Indication: MULTIPLE MYELOMA
     Dosage: 178 MILLIGRAM
     Route: 048
     Dates: start: 20080212
  3. PREDNISONE TAB [Suspect]
     Dosage: 178 MILLIGRAM
     Route: 048
     Dates: end: 20081116
  4. MELPHALAN HYDROCHLORIDE [Suspect]
     Dosage: 16 MILLIGRAM
     Route: 048
     Dates: end: 20081116
  5. LENALIDOMIDE [Suspect]
     Indication: MULTIPLE MYELOMA
     Dosage: 7.5 MILLIGRAM
     Route: 048
     Dates: start: 20080212
  6. LENALIDOMIDE [Suspect]
     Dosage: 7.5 MILLIGRAM
     Route: 048
     Dates: end: 20111106

REACTIONS (1)
  - MYELODYSPLASTIC SYNDROME [None]
